FAERS Safety Report 6875308-0 (Version None)
Quarter: 2010Q3

REPORT INFORMATION
  Report Type: 
  Country: None (occurrence: None)
  Receive Date: 20100727
  Receipt Date: 20070702
  Transmission Date: 20110219
  Serious: Yes (Hospitalization, Other)
  Sender: FDA-Public Use
  Company Number: US-PFIZER INC-2006110337

PATIENT
  Sex: Female
  Weight: 68 kg

DRUGS (7)
  1. CELEBREX [Suspect]
     Indication: OSTEOARTHRITIS
     Dosage: FREQUENCY: 1-2X
     Dates: start: 19990303, end: 20011212
  2. VIOXX [Suspect]
     Indication: OSTEOARTHRITIS
     Route: 048
     Dates: start: 19990701, end: 20010915
  3. VIOXX [Suspect]
     Indication: PAIN
  4. ISOSORBIDE MONONITRATE [Concomitant]
     Indication: HYPERTENSION
     Dates: start: 19990111, end: 20040109
  5. VASOTEC [Concomitant]
     Indication: HYPERTENSION
     Dates: start: 19990113, end: 20010907
  6. PREMPHASE 14/14 [Concomitant]
     Indication: HORMONE THERAPY
     Dates: start: 19990427
  7. IBUPROFEN TABLETS [Concomitant]
     Indication: PAIN
     Dates: start: 19990628, end: 19991218

REACTIONS (1)
  - MYOCARDIAL INFARCTION [None]
